FAERS Safety Report 5745531-7 (Version None)
Quarter: 2008Q2

REPORT INFORMATION
  Report Type: 
  Country: None (occurrence: None)
  Receive Date: 20080519
  Receipt Date: 20080407
  Transmission Date: 20081010
  Serious: No
  Sender: FDA-Public Use
  Company Number: TPA2008A00457

PATIENT
  Age: 79 Year
  Sex: Female
  Weight: 76.6579 kg

DRUGS (3)
  1. ROZEREM [Suspect]
     Indication: POOR QUALITY SLEEP
     Dosage: 8 MG, HS, PER ORAL
     Route: 048
     Dates: start: 20080406, end: 20080407
  2. ROZEREM [Suspect]
     Indication: PROPHYLAXIS
     Dosage: 8 MG, HS, PER ORAL
     Route: 048
     Dates: start: 20080406, end: 20080407
  3. PLAVIX [Concomitant]

REACTIONS (5)
  - HEART RATE INCREASED [None]
  - HYPOAESTHESIA [None]
  - MIDDLE INSOMNIA [None]
  - MOVEMENT DISORDER [None]
  - PHOTOPSIA [None]
